FAERS Safety Report 18784102 (Version 4)
Quarter: 2022Q1

REPORT INFORMATION
  Report Type: Spontaneous
  Country: US (occurrence: US)
  Receive Date: 20210125
  Receipt Date: 20220119
  Transmission Date: 20220424
  Serious: Yes (Other)
  Sender: FDA-Public Use
  Company Number: US-PFIZER INC-2021046863

PATIENT
  Age: 73 Year
  Sex: Female
  Weight: 77 kg

DRUGS (1)
  1. AMLODIPINE BESYLATE [Suspect]
     Active Substance: AMLODIPINE BESYLATE
     Indication: Hypertension
     Dosage: 10 MG, 1X/DAY

REACTIONS (3)
  - Pharyngeal swelling [Unknown]
  - Swelling face [Unknown]
  - Weight increased [Unknown]

NARRATIVE: CASE EVENT DATE: 20090101
